FAERS Safety Report 8941873 (Version 1)
Quarter: 2012Q4

REPORT INFORMATION
  Report Type: 
  Country: IN (occurrence: IN)
  Receive Date: 20121203
  Receipt Date: 20121203
  Transmission Date: 20130627
  Serious: Yes (Hospitalization)
  Sender: FDA-Public Use
  Company Number: IN-ROXANE LABORATORIES, INC.-2012-RO-02468RO

PATIENT
  Age: 58 Year
  Sex: Female

DRUGS (5)
  1. QUETIAPINE FUMARATE [Suspect]
     Indication: BIPOLAR DISORDER
     Dosage: 200 mg
  2. LITHIUM CARBONATE [Suspect]
     Indication: BIPOLAR DISORDER
     Dosage: 600 mg
  3. TELMISARTAN [Suspect]
     Indication: HYPERTENSION
  4. LEVOTHYROXINE [Suspect]
     Indication: HYPOTHYROIDISM
     Dosage: 50 mcg
  5. ACECLOFENAC\ACETAMINOPHEN [Suspect]
     Indication: OSTEOARTHRITIS

REACTIONS (9)
  - Toxicity to various agents [Recovered/Resolved]
  - Hypothyroidism [Unknown]
  - Haemoglobin decreased [None]
  - Blood potassium increased [None]
  - Albumin urine present [None]
  - Haemodialysis [None]
  - Insomnia [None]
  - Osteoarthritis [None]
  - Hypertension [None]
